FAERS Safety Report 4278853-X (Version None)
Quarter: 2004Q1

REPORT INFORMATION
  Report Type: 
  Country: None (occurrence: None)
  Receive Date: 20040122
  Receipt Date: 20040122
  Transmission Date: 20041129
  Serious: No
  Sender: FDA-Public Use
  Company Number: None

PATIENT
  Age: 16 Year
  Sex: Male
  Weight: 56 kg

DRUGS (2)
  1. NUTROPIN AQ [Suspect]
     Indication: GROWTH RETARDATION
     Dosage: 2.5 MG NIGHTLY SUBCUTANEOUS
     Route: 058
  2. TESTOSTERONE [Suspect]
     Indication: DELAYED PUBERTY
     Dosage: 50 MG MONTHLY INTRAMUSCULAR
     Route: 030

REACTIONS (2)
  - OSTEOCHONDROMA [None]
  - PECTUS CARINATUM [None]
